FAERS Safety Report 9219651 (Version 1)
Quarter: 2013Q2

REPORT INFORMATION
  Report Type: Spontaneous
  Country: DE (occurrence: DE)
  Receive Date: 20130409
  Receipt Date: 20130409
  Transmission Date: 20140414
  Serious: Yes (Life-Threatening, Disabling)
  Sender: FDA-Public Use
  Company Number: DE-ROCHE-1206288

PATIENT
  Age: 50 Year
  Sex: Male

DRUGS (4)
  1. ACTILYSE [Suspect]
     Indication: CEREBROVASCULAR ACCIDENT
     Route: 065
     Dates: start: 20070320
  2. ADALAT [Concomitant]
     Indication: HYPERTENSION
     Dosage: 1 ANZ
     Route: 048
  3. CATAPRESAN [Concomitant]
     Indication: HYPERTENSION
     Route: 048
     Dates: start: 20070320
  4. EBRANTIL [Concomitant]
     Route: 065

REACTIONS (2)
  - Thalamus haemorrhage [Recovered/Resolved]
  - Disability [Not Recovered/Not Resolved]
